FAERS Safety Report 9979854 (Version 2)
Quarter: 2014Q1

REPORT INFORMATION
  Report Type: Report from Study
  Country: US (occurrence: US)
  Receive Date: 20140307
  Receipt Date: 20140307
  Transmission Date: 20141002
  Serious: Yes (Other)
  Sender: FDA-Public Use
  Company Number: US-ABBVIE-13P-163-1170543-00

PATIENT
  Age: 54 Year
  Sex: Male
  Weight: 121.67 kg

DRUGS (4)
  1. HUMIRA [Suspect]
     Indication: PSORIASIS
     Route: 058
     Dates: start: 20120306, end: 201209
  2. HUMIRA [Suspect]
     Route: 058
     Dates: start: 201212, end: 201307
  3. HUMIRA [Suspect]
     Route: 058
     Dates: start: 201308
  4. TACLONEX [Concomitant]
     Indication: PSORIASIS

REACTIONS (2)
  - Hip arthroplasty [Recovered/Resolved]
  - Carpal tunnel decompression [Recovered/Resolved]
